FAERS Safety Report 10185984 (Version 1)
Quarter: 2014Q2

REPORT INFORMATION
  Report Type: Spontaneous
  Country: US (occurrence: None)
  Receive Date: 20140520
  Receipt Date: 20140520
  Transmission Date: 20141212
  Serious: Yes (Hospitalization)
  Sender: FDA-Public Use
  Company Number: None

PATIENT
  Age: 65 Year
  Sex: Male
  Weight: 100.9 kg

DRUGS (1)
  1. WARFARIN [Suspect]
     Route: 048
     Dates: start: 20130524

REACTIONS (6)
  - Melaena [None]
  - Melaena [None]
  - Faeces discoloured [None]
  - Dizziness [None]
  - International normalised ratio increased [None]
  - Orthostatic intolerance [None]
